FAERS Safety Report 5567507-5 (Version None)
Quarter: 2007Q4

REPORT INFORMATION
  Report Type: 
  Country: None (occurrence: None)
  Receive Date: 20071214
  Receipt Date: 20071128
  Transmission Date: 20080405
  Serious: Yes (Disabling)
  Sender: FDA-Public Use
  Company Number: 230145M07CAN

PATIENT
  Sex: Female

DRUGS (1)
  1. REBIF [Suspect]
     Indication: MULTIPLE SCLEROSIS
     Dosage: SUBCUTANEOUS
     Route: 058

REACTIONS (6)
  - HYPERTENSION [None]
  - PAIN [None]
  - RETINAL ARTERY OCCLUSION [None]
  - RETINOPATHY [None]
  - SCOTOMA [None]
  - VISUAL DISTURBANCE [None]
